FAERS Safety Report 9801676 (Version 2)
Quarter: 2014Q1

REPORT INFORMATION
  Report Type: Spontaneous
  Country: US (occurrence: US)
  Receive Date: 20140107
  Receipt Date: 20140318
  Transmission Date: 20141002
  Serious: Yes (Other)
  Sender: FDA-Public Use
  Company Number: PHHY2013US154253

PATIENT
  Age: 35 Year
  Sex: Female
  Weight: 113 kg

DRUGS (10)
  1. QUETIAPINE [Suspect]
     Dosage: 300 MG, UNK
  2. PROPOFOL [Interacting]
     Dosage: 200 MG, UNK
     Route: 042
  3. FENTANYL [Interacting]
     Dosage: 100 UG, UNK
     Route: 042
  4. FENTANYL [Interacting]
     Dosage: 50 UG, UNK
     Route: 042
  5. MIDAZOLAM [Suspect]
     Dosage: 2 MG, UNK
  6. LIDOCAINE [Suspect]
     Dosage: 80 MG, UNK
  7. DESFLURANE [Suspect]
  8. SUCCINYLCHOLINE [Concomitant]
  9. VENLAFAXINE [Concomitant]
     Dosage: 300 MG, UNK
  10. LAMOTRIGINE [Concomitant]
     Dosage: 300 MG, UNK

REACTIONS (2)
  - Hypotension [Recovered/Resolved]
  - Drug interaction [Unknown]
